FAERS Safety Report 7885292-9 (Version None)
Quarter: 2011Q4

REPORT INFORMATION
  Report Type: 
  Country: None (occurrence: None)
  Receive Date: 20111102
  Receipt Date: 20111026
  Transmission Date: 20120403
  Serious: Yes (Other)
  Sender: FDA-Public Use
  Company Number: FR-AMGEN-QUU389327

PATIENT
  Age: 55 Year
  Sex: Female
  Weight: 58 kg

DRUGS (6)
  1. ROMIPLOSTIM [Suspect]
     Indication: THROMBOCYTOPENIA
     Dosage: 15 MUG/KG, QWK
     Dates: start: 20091230
  2. ALPRAZOLAM [Concomitant]
     Dosage: UNK UNK, TID
  3. NALTREXONE HYDROCHLORIDE [Concomitant]
     Dosage: UNK UNK, QD
  4. ACETAMINOPHEN [Concomitant]
     Dosage: UNK UNK, TID
  5. VALPROATE SODIUM [Concomitant]
     Dosage: UNK UNK, TID
  6. TRAMADOL HCL [Concomitant]
     Dosage: 50 MUG, QID

REACTIONS (2)
  - DRUG INEFFECTIVE [None]
  - OVERDOSE [None]
